FAERS Safety Report 7529792-X (Version None)
Quarter: 2011Q2

REPORT INFORMATION
  Report Type: 
  Country: None (occurrence: None)
  Receive Date: 20110607
  Receipt Date: 20110525
  Transmission Date: 20111010
  Serious: Yes (Other)
  Sender: FDA-Public Use
  Company Number: US-AMGEN-USASP2011020132

PATIENT
  Age: 76 Year
  Sex: Female

DRUGS (9)
  1. SIMVASTATIN [Concomitant]
  2. GLYBURIDE [Concomitant]
  3. QUINAPRIL HCL [Concomitant]
  4. VICODIN [Concomitant]
  5. ACTOS [Concomitant]
  6. NEXIUM [Concomitant]
  7. NPLATE [Suspect]
     Indication: IDIOPATHIC THROMBOCYTOPENIC PURPURA
     Dates: start: 20101101, end: 20110110
  8. LIPITOR [Concomitant]
  9. NPLATE [Suspect]
     Dosage: 2 A?G/KG, UNK
     Dates: end: 20110110

REACTIONS (5)
  - PLATELET COUNT ABNORMAL [None]
  - NAUSEA [None]
  - THROMBOCYTOPENIA [None]
  - GASTROINTESTINAL DISORDER [None]
  - ABDOMINAL PAIN [None]
